FAERS Safety Report 11409296 (Version 1)
Quarter: 2015Q3

REPORT INFORMATION
  Report Type: Spontaneous
  Country: US (occurrence: None)
  Receive Date: 20150820
  Receipt Date: 20150820
  Transmission Date: 20151125
  Serious: Yes (Life-Threatening, Hospitalization)
  Sender: FDA-Public Use
  Company Number: None

PATIENT
  Age: 48 Year
  Sex: Female
  Weight: 60.78 kg

DRUGS (1)
  1. INSULIN [Suspect]
     Active Substance: INSULIN NOS

REACTIONS (6)
  - Device issue [None]
  - Blood glucose increased [None]
  - Obstruction [None]
  - Hypoaesthesia [None]
  - Diabetic ketoacidosis [None]
  - Infusion site reaction [None]

NARRATIVE: CASE EVENT DATE: 20150819
